FAERS Safety Report 6217877-X (Version None)
Quarter: 2009Q2

REPORT INFORMATION
  Report Type: 
  Country: None (occurrence: None)
  Receive Date: 20090608
  Receipt Date: 20090602
  Transmission Date: 20091009
  Serious: Yes (Other)
  Sender: FDA-Public Use
  Company Number: GR-ROCHE-636159

PATIENT
  Age: 25 Year
  Sex: Male
  Weight: 63 kg

DRUGS (1)
  1. ROACCUTAN [Suspect]
     Indication: ACNE
     Route: 048
     Dates: start: 20090301

REACTIONS (3)
  - ACNE [None]
  - GINGIVAL DISCOLOURATION [None]
  - GINGIVAL RECESSION [None]
